FAERS Safety Report 8204481-7 (Version None)
Quarter: 2012Q1

REPORT INFORMATION
  Report Type: 
  Country: None (occurrence: None)
  Receive Date: 20120313
  Receipt Date: 20120305
  Transmission Date: 20120608
  Serious: Yes (Disabling, Other)
  Sender: FDA-Public Use
  Company Number: US-CELGENEUS-163-21880-11052293

PATIENT
  Sex: Male

DRUGS (10)
  1. CALCIUM [Concomitant]
     Route: 065
  2. MS CONTIN [Concomitant]
     Indication: BREAKTHROUGH PAIN
     Dosage: 90 MILLIGRAM
     Route: 065
  3. LOVAZA [Concomitant]
     Route: 065
  4. COLACE [Concomitant]
     Dosage: 3
     Route: 048
  5. REVLIMID [Suspect]
     Dates: start: 20111001
  6. MULTI-VITAMINS [Concomitant]
     Route: 065
  7. REVLIMID [Suspect]
     Indication: MULTIPLE MYELOMA
     Dosage: 15 MILLIGRAM
     Route: 048
     Dates: start: 20100707, end: 20101001
  8. MS CONTIN [Concomitant]
     Dosage: 60 MILLIGRAM
     Route: 065
  9. VITAMIN D [Concomitant]
     Route: 065
  10. REVLIMID [Suspect]
     Dosage: 5 MILLIGRAM
     Route: 048
     Dates: start: 20110301

REACTIONS (5)
  - OSTEONECROSIS [None]
  - ORAL INFECTION [None]
  - ASTHENIA [None]
  - WEIGHT DECREASED [None]
  - FATIGUE [None]
